FAERS Safety Report 9896609 (Version 1)
Quarter: 2014Q1

REPORT INFORMATION
  Report Type: Spontaneous
  Country: US (occurrence: US)
  Receive Date: 20140213
  Receipt Date: 20140213
  Transmission Date: 20141002
  Serious: No
  Sender: FDA-Public Use
  Company Number: US-BRISTOL-MYERS SQUIBB COMPANY-19143726

PATIENT
  Age: 58 Year
  Sex: Female
  Weight: 77.1 kg

DRUGS (8)
  1. ABATACEPT SUBQ INJECTION 125MG/ML [Suspect]
     Route: 058
  2. CENTRUM SILVER [Concomitant]
     Dosage: TABS
  3. GLUCOSAMINE [Concomitant]
     Dosage: 1DF:250-200 UNITS NOS? CAPS
  4. CHONDROITIN [Concomitant]
     Dosage: 1DF:250-200 UNITS NOS? CAPS
  5. KRILL OIL [Concomitant]
     Dosage: CAPS
  6. VITAMIN C [Concomitant]
     Dosage: CAPS
  7. VITAMIN D [Concomitant]
     Dosage: 1DF: 100 UNITS NOS?CAPS
  8. CALCIUM D3 SANDOZ [Concomitant]
     Dosage: TABS

REACTIONS (1)
  - Drug ineffective [Unknown]
